FAERS Safety Report 6110269-3 (Version None)
Quarter: 2009Q1

REPORT INFORMATION
  Report Type: 
  Country: None (occurrence: None)
  Receive Date: 20090310
  Receipt Date: 20090309
  Transmission Date: 20090719
  Serious: Yes (Other)
  Sender: FDA-Public Use
  Company Number: DE-WYE-G02919209

PATIENT

DRUGS (1)
  1. TYGACIL [Suspect]
     Indication: ENTEROCOCCAL INFECTION
     Dosage: UNKNOWN
     Route: 042
     Dates: start: 20081127, end: 20081201

REACTIONS (3)
  - ACINETOBACTER INFECTION [None]
  - PATHOGEN RESISTANCE [None]
  - STAPHYLOCOCCAL INFECTION [None]
